FAERS Safety Report 8594121-X (Version None)
Quarter: 2012Q3

REPORT INFORMATION
  Report Type: 
  Country: None (occurrence: None)
  Receive Date: 20120814
  Receipt Date: 20120806
  Transmission Date: 20120928
  Serious: Yes (Other)
  Sender: FDA-Public Use
  Company Number: US-FRI-1000037696

PATIENT
  Sex: Male

DRUGS (1)
  1. CELEXA [Suspect]
     Route: 064

REACTIONS (1)
  - TRANSPOSITION OF THE GREAT VESSELS [None]
